FAERS Safety Report 4658885-X (Version None)
Quarter: 2005Q2

REPORT INFORMATION
  Report Type: 
  Country: None (occurrence: None)
  Receive Date: 20050509
  Receipt Date: 20050425
  Transmission Date: 20051028
  Serious: No
  Sender: FDA-Public Use
  Company Number: 2005AP02412

PATIENT
  Age: 50 Year
  Sex: Female

DRUGS (11)
  1. MARCAINE [Suspect]
     Dosage: 50 MG ED
     Dates: start: 20050412, end: 20050413
  2. XYLOCAINE [Suspect]
     Dosage: 19 ML
     Dates: start: 20050412, end: 20050412
  3. DIPRIVAN [Suspect]
     Dosage: 100 MG IV
     Route: 042
     Dates: start: 20050412, end: 20050412
  4. ULTANE [Concomitant]
  5. FENTANEST [Concomitant]
  6. MUSCULAX [Concomitant]
  7. LEPETAN [Concomitant]
  8. LASIX [Concomitant]
  9. BISOLVON [Concomitant]
  10. CEFAMEZIN [Concomitant]
  11. PANTOL [Concomitant]

REACTIONS (3)
  - ALANINE AMINOTRANSFERASE INCREASED [None]
  - ASPARTATE AMINOTRANSFERASE INCREASED [None]
  - HEPATIC FUNCTION ABNORMAL [None]
